FAERS Safety Report 24143329 (Version 1)
Quarter: 2024Q3

REPORT INFORMATION
  Report Type: Report from Study
  Country: US (occurrence: US)
  Receive Date: 20240726
  Receipt Date: 20240726
  Transmission Date: 20241016
  Serious: Yes (Other)
  Sender: HLS THERAPEUTICS
  Company Number: US-HLS-202400367

PATIENT
  Age: 17 Year
  Sex: Female

DRUGS (1)
  1. CLOZAPINE [Suspect]
     Active Substance: CLOZAPINE
     Indication: Product used for unknown indication
     Dosage: 100 MG AND 50 MG
     Route: 048

REACTIONS (4)
  - Neutropenia [Recovered/Resolved]
  - Therapy interrupted [Unknown]
  - Product dose omission issue [Unknown]
  - Off label use [Unknown]
